FAERS Safety Report 14688087 (Version 1)
Quarter: 2018Q1

REPORT INFORMATION
  Report Type: Spontaneous
  Country: US (occurrence: US)
  Receive Date: 20180328
  Receipt Date: 20180328
  Transmission Date: 20180509
  Serious: No
  Sender: FDA-Public Use
  Company Number: US-PFIZER INC-2018124778

PATIENT
  Age: 85 Year
  Sex: Female

DRUGS (10)
  1. FAMOTIDIN [Concomitant]
     Dosage: 20 MG, UNK
  2. OMEPRAZOLE. [Concomitant]
     Active Substance: OMEPRAZOLE
     Dosage: 40 MG, UNK
  3. ONDANSETRON [Concomitant]
     Active Substance: ONDANSETRON
     Dosage: 4 MG, UNK
  4. BOOSTRIX [Concomitant]
     Active Substance: TETANUS TOXOID, REDUCED DIPHTHERIA TOXOID AND ACELLULAR PERTUSSIS VACCINE, ADSORBED ANTIGENS
     Dosage: UNK[DIPHTHERIA VACCINE TOXOID 2.5/PERTUSSIS VACCINE ACELLULAR3-COMPONENT 18/TETANUS VACCINE TOXOID5]
  5. SUTENT [Suspect]
     Active Substance: SUNITINIB MALATE
     Indication: RENAL CANCER
     Dosage: 25 MG, CYCLIC (1 CAPSULE BY MOUTH EVERY DAY FOR 2 WEEKS ON, THEN 1 WEEK OFF AS)
     Route: 048
  6. IPRATROPIUM [Concomitant]
     Active Substance: IPRATROPIUM
     Dosage: UNK
  7. SPIRIVA [Concomitant]
     Active Substance: TIOTROPIUM BROMIDE MONOHYDRATE
     Dosage: 18 UG, UNK
  8. XIIDRA [Concomitant]
     Active Substance: LIFITEGRAST
     Dosage: UNK
  9. FLUTICASONE. [Concomitant]
     Active Substance: FLUTICASONE
     Dosage: 50 UG, UNK; (50 MCG/AC)
  10. NITROFURANTOIN. [Concomitant]
     Active Substance: NITROFURANTOIN
     Dosage: 100 MG, UNK

REACTIONS (2)
  - Diarrhoea [Unknown]
  - Glossodynia [Unknown]
